FAERS Safety Report 11522637 (Version 1)
Quarter: 2015Q3

REPORT INFORMATION
  Report Type: Spontaneous
  Country: US (occurrence: US)
  Receive Date: 20150903
  Receipt Date: 20150903
  Transmission Date: 20151125
  Serious: No
  Sender: FDA-Public Use
  Company Number: US-ELI_LILLY_AND_COMPANY-US201301008884

PATIENT
  Sex: Female

DRUGS (11)
  1. DILTIAZEM XR [Concomitant]
     Active Substance: DILTIAZEM
     Dosage: 240 MG, QD
  2. ATIVAN [Concomitant]
     Active Substance: LORAZEPAM
     Indication: SLEEP APNOEA SYNDROME
     Dosage: 1 MG, UNKNOWN
  3. GABAPENTIN. [Concomitant]
     Active Substance: GABAPENTIN
     Indication: NEURALGIA
     Dosage: 100 MG, UNK
  4. BABY ASPIRIN [Concomitant]
     Active Substance: ASPIRIN
     Dosage: 81 MG, QD
  5. METFORMIN [Concomitant]
     Active Substance: METFORMIN HYDROCHLORIDE
     Dosage: 500 MG, BID
  6. WARFARIN [Concomitant]
     Active Substance: WARFARIN
     Dosage: 5 MG, QD
  7. HYDROCODONE [Concomitant]
     Active Substance: HYDROCODONE
     Indication: PAIN
     Dosage: 1 DF, PRN
  8. ZOCOR [Concomitant]
     Active Substance: SIMVASTATIN
     Dosage: 80 MG, UNKNOWN
  9. ZETIA [Concomitant]
     Active Substance: EZETIMIBE
  10. LISINOPRIL AND HYDROCHLOROTHIAZIDE [Concomitant]
     Active Substance: HYDROCHLOROTHIAZIDE\LISINOPRIL
  11. CYMBALTA [Suspect]
     Active Substance: DULOXETINE HYDROCHLORIDE
     Indication: DEPRESSION
     Dosage: 60 MG, QD

REACTIONS (7)
  - Vision blurred [Recovered/Resolved]
  - Eye movement disorder [Recovered/Resolved]
  - Pain [Unknown]
  - Glycosylated haemoglobin increased [Unknown]
  - Fall [Unknown]
  - Dizziness [Recovered/Resolved]
  - Drug withdrawal syndrome [Recovered/Resolved]
